FAERS Safety Report 8441505 (Version 3)
Quarter: 2013Q1

REPORT INFORMATION
  Report Type: Spontaneous
  Country: US (occurrence: None)
  Receive Date: 20120223
  Receipt Date: 20121203
  Transmission Date: 20140127
  Serious: Yes (Other)
  Sender: FDA-Public Use
  Company Number: JPI-P-019473

PATIENT
  Age: 45 Year
  Sex: Female
  Weight: 133.81 kg

DRUGS (4)
  1. XYREM [Suspect]
     Indication: FIBROMYALGIA
     Dosage: (1ST DOSE  4 GM/2ND DOSE 2 GM)
     Route: 048
     Dates: start: 20120120, end: 2012
  2. XYREM [Suspect]
     Indication: INSOMNIA
     Dosage: (1ST DOSE  4 GM/2ND DOSE 2 GM)
     Route: 048
     Dates: start: 20120120, end: 2012
  3. XYREM [Suspect]
     Indication: NARCOLEPSY
     Dosage: (1ST DOSE  4 GM/2ND DOSE 2 GM)
     Route: 048
     Dates: start: 20120120, end: 2012
  4. OXYCONTIN [Concomitant]

REACTIONS (9)
  - Speech disorder [None]
  - Vocal cord paralysis [None]
  - Thyroid neoplasm [None]
  - Tinnitus [None]
  - Stress [None]
  - Neuralgia [None]
  - Dysphonia [None]
  - Dry throat [None]
  - Drug dose omission [None]
